FAERS Safety Report 14984702 (Version 1)
Quarter: 2018Q2

REPORT INFORMATION
  Report Type: Spontaneous
  Country: CA (occurrence: CA)
  Receive Date: 20180607
  Receipt Date: 20180607
  Transmission Date: 20180711
  Serious: Yes (Hospitalization, Other)
  Sender: FDA-Public Use
  Company Number: CA-JNJFOC-20180604561

PATIENT
  Age: 73 Year
  Sex: Male
  Weight: 74 kg

DRUGS (22)
  1. DALTEPARIN [Concomitant]
     Active Substance: DALTEPARIN
     Indication: EMBOLISM VENOUS
     Route: 065
     Dates: start: 20141009, end: 20150331
  2. DALTEPARIN [Concomitant]
     Active Substance: DALTEPARIN
     Indication: EMBOLISM VENOUS
     Route: 065
     Dates: start: 20170426, end: 20170517
  3. CYANOCOBALAMIN. [Concomitant]
     Active Substance: CYANOCOBALAMIN
     Route: 065
     Dates: start: 20140429
  4. XARELTO [Suspect]
     Active Substance: RIVAROXABAN
     Indication: EMBOLISM VENOUS
     Route: 048
     Dates: start: 20170405, end: 20170425
  5. DALTEPARIN [Concomitant]
     Active Substance: DALTEPARIN
     Indication: EMBOLISM VENOUS
     Route: 065
     Dates: start: 20131206, end: 20140304
  6. DALTEPARIN [Concomitant]
     Active Substance: DALTEPARIN
     Indication: EMBOLISM VENOUS
     Route: 065
     Dates: start: 20161004, end: 20170404
  7. TRAZODONE [Concomitant]
     Active Substance: TRAZODONE HYDROCHLORIDE
     Route: 065
     Dates: start: 20170601, end: 20170601
  8. DALTEPARIN [Concomitant]
     Active Substance: DALTEPARIN
     Indication: EMBOLISM VENOUS
     Route: 065
     Dates: start: 20150616, end: 20150929
  9. VITAMIN D [Concomitant]
     Active Substance: CHOLECALCIFEROL
     Route: 065
     Dates: start: 2014
  10. FRAGMIN [Concomitant]
     Active Substance: DALTEPARIN SODIUM
     Indication: EMBOLISM VENOUS
     Route: 065
     Dates: start: 20170527
  11. DALTEPARIN [Concomitant]
     Active Substance: DALTEPARIN
     Indication: EMBOLISM VENOUS
     Route: 065
     Dates: start: 20140304, end: 20140825
  12. DALTEPARIN [Concomitant]
     Active Substance: DALTEPARIN
     Indication: EMBOLISM VENOUS
     Route: 065
     Dates: start: 20150929, end: 20160105
  13. DALTEPARIN [Concomitant]
     Active Substance: DALTEPARIN
     Indication: EMBOLISM VENOUS
     Route: 065
     Dates: start: 20160105, end: 20161004
  14. DALTEPARIN [Concomitant]
     Active Substance: DALTEPARIN
     Indication: EMBOLISM VENOUS
     Route: 065
     Dates: start: 20150331, end: 20150616
  15. PROCHLORPERAZINE. [Concomitant]
     Active Substance: PROCHLORPERAZINE
     Route: 065
     Dates: start: 20161005
  16. FOLIC ACID. [Concomitant]
     Active Substance: FOLIC ACID
     Route: 065
     Dates: start: 20160907
  17. PANTOPRAZOLE [Concomitant]
     Active Substance: PANTOPRAZOLE
     Route: 065
     Dates: start: 20160519
  18. MELATONIN [Concomitant]
     Active Substance: MELATONIN
     Route: 065
     Dates: start: 20170523, end: 20170601
  19. IOHEXOL [Concomitant]
     Active Substance: IOHEXOL
     Route: 042
     Dates: start: 20170517, end: 20170517
  20. DALTEPARIN [Concomitant]
     Active Substance: DALTEPARIN
     Indication: EMBOLISM VENOUS
     Route: 065
     Dates: start: 20140825, end: 20141009
  21. ASA [Concomitant]
     Active Substance: ASPIRIN
     Route: 065
     Dates: start: 20150331, end: 20170517
  22. PREDNISONE. [Concomitant]
     Active Substance: PREDNISONE
     Route: 065
     Dates: start: 20170522, end: 20170527

REACTIONS (3)
  - Cerebrovascular accident [Recovered/Resolved]
  - Decreased appetite [Recovered/Resolved]
  - Headache [Recovered/Resolved]

NARRATIVE: CASE EVENT DATE: 20170424
